FAERS Safety Report 18501396 (Version 3)
Quarter: 2020Q4

REPORT INFORMATION
  Report Type: Spontaneous
  Country: US (occurrence: US)
  Receive Date: 20201113
  Receipt Date: 20201204
  Transmission Date: 20210114
  Serious: Yes (Other)
  Sender: FDA-Public Use
  Company Number: US-SEPTODONT-202005942

PATIENT
  Age: 45 Year
  Sex: Female

DRUGS (2)
  1. BENZOCAINE TOPICAL LOCAL ANESTHETIC [Concomitant]
     Active Substance: BENZOCAINE
     Indication: DENTAL LOCAL ANAESTHESIA
     Dosage: ONLY USED A FEW DROPS ON THE PATIENT?S GUM
     Route: 004
     Dates: start: 20201015, end: 20201015
  2. SEPTOCAINE AND EPINEPHRINE [Suspect]
     Active Substance: ARTICAINE HYDROCHLORIDE\EPINEPHRINE BITARTRATE
     Indication: DENTAL LOCAL ANAESTHESIA
     Dosage: FOUR (4) DROPS
     Route: 004
     Dates: start: 20201015, end: 20201015

REACTIONS (2)
  - Exposure during pregnancy [Not Recovered/Not Resolved]
  - Abortion spontaneous [Unknown]

NARRATIVE: CASE EVENT DATE: 20201015
